FAERS Safety Report 15590472 (Version 2)
Quarter: 2019Q1

REPORT INFORMATION
  Report Type: Spontaneous
  Country: ES (occurrence: ES)
  Receive Date: 20181106
  Receipt Date: 20190101
  Transmission Date: 20190417
  Serious: Yes (Life-Threatening, Hospitalization, Other)
  Sender: FDA-Public Use
  Company Number: ES-ACCORD-091294

PATIENT
  Age: 79 Year
  Sex: Female

DRUGS (1)
  1. CAPECITABINE. [Suspect]
     Active Substance: CAPECITABINE
     Indication: BREAST CANCER
     Dosage: CUMULATIVE DOSE 26 G

REACTIONS (12)
  - Thrombocytopenia [Unknown]
  - Mucosal inflammation [Unknown]
  - Diarrhoea [Unknown]
  - Palmar-plantar erythrodysaesthesia syndrome [Recovered/Resolved]
  - Pyrexia [Unknown]
  - Odynophagia [Unknown]
  - Dysphagia [Unknown]
  - Nausea [Unknown]
  - Anaemia [Unknown]
  - Asthenia [Unknown]
  - Neutropenia [Unknown]
  - Alopecia [Recovered/Resolved]
